FAERS Safety Report 24121736 (Version 2)
Quarter: 2024Q3

REPORT INFORMATION
  Report Type: Spontaneous
  Country: ES (occurrence: ES)
  Receive Date: 20240722
  Receipt Date: 20240805
  Transmission Date: 20241017
  Serious: Yes (Death, Hospitalization, Other)
  Sender: INCYTE
  Company Number: ES-INCYTE CORPORATION-2024IN007526

PATIENT

DRUGS (2)
  1. TAFASITAMAB [Suspect]
     Active Substance: TAFASITAMAB
     Indication: Diffuse large B-cell lymphoma
     Dosage: UNK
     Route: 065
  2. LENALIDOMIDE [Concomitant]
     Active Substance: LENALIDOMIDE
     Indication: Diffuse large B-cell lymphoma
     Dosage: UNK
     Route: 065

REACTIONS (2)
  - Death [Fatal]
  - Ill-defined disorder [Unknown]
